FAERS Safety Report 24431213 (Version 6)
Quarter: 2025Q1

REPORT INFORMATION
  Report Type: Report from Study
  Country: CA (occurrence: CA)
  Receive Date: 20241014
  Receipt Date: 20250326
  Transmission Date: 20250409
  Serious: Yes (Hospitalization, Other)
  Sender: UCB
  Company Number: CA-UCBSA-2024051672

PATIENT
  Age: 58 Year
  Sex: Female

DRUGS (8)
  1. BIMEKIZUMAB [Suspect]
     Active Substance: BIMEKIZUMAB
     Indication: Psoriasis
     Dosage: 320 MILLIGRAM, EV 4 WEEKS
     Route: 058
     Dates: start: 20230301
  2. BIMEKIZUMAB [Suspect]
     Active Substance: BIMEKIZUMAB
     Dosage: 320 MILLIGRAM, EV 8 WEEKS
     Route: 058
  3. BIMEKIZUMAB [Suspect]
     Active Substance: BIMEKIZUMAB
     Dosage: 320 MILLIGRAM, EV 4 WEEKS
     Route: 058
     Dates: start: 20241009
  4. DUOBRII [Concomitant]
     Active Substance: HALOBETASOL PROPIONATE\TAZAROTENE
     Indication: Product used for unknown indication
  5. BUPROPION [Concomitant]
     Active Substance: BUPROPION
     Indication: Product used for unknown indication
  6. OLANZAPINE [Concomitant]
     Active Substance: OLANZAPINE
     Indication: Product used for unknown indication
  7. CITALOPRAM [Concomitant]
     Active Substance: CITALOPRAM
     Indication: Product used for unknown indication
  8. TYLENOL [Concomitant]
     Active Substance: ACETAMINOPHEN
     Indication: Arthralgia

REACTIONS (5)
  - Sepsis [Recovering/Resolving]
  - Knee arthroplasty [Unknown]
  - Psoriasis [Unknown]
  - Inappropriate schedule of product administration [Unknown]
  - Intentional dose omission [Unknown]

NARRATIVE: CASE EVENT DATE: 20241009
